FAERS Safety Report 8587818-9 (Version None)
Quarter: 2012Q3

REPORT INFORMATION
  Report Type: 
  Country: None (occurrence: None)
  Receive Date: 20120813
  Receipt Date: 20120801
  Transmission Date: 20120928
  Serious: Yes (Hospitalization)
  Sender: FDA-Public Use
  Company Number: US-BIOGENIDEC-2012BI029652

PATIENT
  Age: 39 Year
  Sex: Female

DRUGS (4)
  1. CHANTIX [Concomitant]
     Indication: SMOKING CESSATION THERAPY
  2. TYSABRI [Concomitant]
     Indication: MULTIPLE SCLEROSIS
     Route: 042
     Dates: start: 20120628
  3. AVONEX [Suspect]
     Indication: MULTIPLE SCLEROSIS
     Route: 030
     Dates: start: 20060408, end: 20071228
  4. AVONEX [Suspect]
     Route: 030
     Dates: start: 20091005, end: 20120601

REACTIONS (3)
  - FALL [None]
  - DECUBITUS ULCER [None]
  - VOMITING [None]
